FAERS Safety Report 19331860 (Version 1)
Quarter: 2021Q2

REPORT INFORMATION
  Report Type: Report from Study
  Country: None (occurrence: CA)
  Receive Date: 20210529
  Receipt Date: 20210529
  Transmission Date: 20210717
  Serious: Yes (Other)
  Sender: FDA-Public Use
  Company Number: CA-ABBVIE-19K-028-3199973-00

PATIENT
  Sex: Female

DRUGS (5)
  1. HUMIRA [Suspect]
     Active Substance: ADALIMUMAB
     Indication: HIDRADENITIS
     Route: 058
     Dates: start: 20170526, end: 20180615
  2. AVELOX [Concomitant]
     Active Substance: MOXIFLOXACIN HYDROCHLORIDE
     Indication: PRODUCT USED FOR UNKNOWN INDICATION
  3. HUMIRA [Suspect]
     Active Substance: ADALIMUMAB
     Route: 058
     Dates: start: 20180731
  4. CLINDAMYCIN. [Concomitant]
     Active Substance: CLINDAMYCIN
     Indication: PRODUCT USED FOR UNKNOWN INDICATION
  5. METFORMIN [Concomitant]
     Active Substance: METFORMIN HYDROCHLORIDE
     Indication: PRODUCT USED FOR UNKNOWN INDICATION

REACTIONS (19)
  - Back disorder [Not Recovered/Not Resolved]
  - Eye infection [Unknown]
  - Lacrimation increased [Unknown]
  - Nasal congestion [Unknown]
  - Upper respiratory tract infection [Unknown]
  - Erythema [Unknown]
  - Surgery [Unknown]
  - Hidradenitis [Not Recovered/Not Resolved]
  - Mass [Not Recovered/Not Resolved]
  - Ear discomfort [Unknown]
  - General symptom [Unknown]
  - Rhinorrhoea [Not Recovered/Not Resolved]
  - Eye discharge [Not Recovered/Not Resolved]
  - Post procedural complication [Unknown]
  - Musculoskeletal disorder [Not Recovered/Not Resolved]
  - Stress [Unknown]
  - Pain [Unknown]
  - Basal cell carcinoma [Unknown]
  - Plastic surgery [Unknown]

NARRATIVE: CASE EVENT DATE: 2018
